FAERS Safety Report 9207497 (Version 1)
Quarter: 2013Q2

REPORT INFORMATION
  Report Type: Spontaneous
  Country: FR (occurrence: FR)
  Receive Date: 20130403
  Receipt Date: 20130403
  Transmission Date: 20140414
  Serious: Yes (Hospitalization)
  Sender: FDA-Public Use
  Company Number: FR-TEVA-395461ISR

PATIENT
  Age: 51 Year
  Sex: Female

DRUGS (2)
  1. AZILECT [Suspect]
     Indication: PARKINSON^S DISEASE
     Dosage: 1 MILLIGRAM DAILY; 1 INTAKE IN THE MORNING
     Route: 048
     Dates: start: 20130312, end: 20130312
  2. PRETERAX [Concomitant]
     Indication: HYPERTENSION
     Dosage: AS LONG TERM THERAPY

REACTIONS (8)
  - Malaise [Recovered/Resolved]
  - Vitreous floaters [Recovered/Resolved]
  - Feeling hot [Recovered/Resolved]
  - Dizziness [Recovered/Resolved]
  - Chest pain [Recovered/Resolved]
  - Musculoskeletal pain [Recovered/Resolved]
  - Dyspnoea [Recovered/Resolved]
  - Tremor [Recovered/Resolved]
